FAERS Safety Report 18310258 (Version 3)
Quarter: 2021Q4

REPORT INFORMATION
  Report Type: Spontaneous
  Country: FR (occurrence: FR)
  Receive Date: 20200924
  Receipt Date: 20211221
  Transmission Date: 20220303
  Serious: Yes (Other)
  Sender: FDA-Public Use
  Company Number: FR-ETHYPHARM-201900954

PATIENT
  Sex: Female

DRUGS (9)
  1. MORPHINE SULFATE [Suspect]
     Active Substance: MORPHINE SULFATE
     Indication: Product used for unknown indication
     Dosage: 30 MG, UNK
     Route: 045
  2. MORPHINE SULFATE [Suspect]
     Active Substance: MORPHINE SULFATE
     Dosage: 30 MG, UNK
     Route: 045
  3. MORPHINE SULFATE [Suspect]
     Active Substance: MORPHINE SULFATE
     Dosage: 30 MG, UNK
     Route: 045
  4. CODEINE [Suspect]
     Active Substance: CODEINE
     Indication: Substance use
     Dosage: 150 MG, UNK (150 MG PER INTAKE)
     Route: 065
  5. CODEINE [Suspect]
     Active Substance: CODEINE
     Dosage: 60 MG, UNK (60 MG PER INTAKE)
     Route: 065
  6. TRAMADOL [Suspect]
     Active Substance: TRAMADOL
     Indication: Substance use
     Dosage: 300 MG, UNK (300 MG PER INTAKE)
     Route: 065
  7. SKENAN [Suspect]
     Active Substance: MORPHINE SULFATE
     Indication: Substance use
     Dosage: 200 MG, UNK
     Route: 045
  8. SKENAN [Suspect]
     Active Substance: MORPHINE SULFATE
     Dosage: UNK (FROM 60 TO 80 MG IN A SINGLE INTAKE, 2 TO 3 TIMES WEEKLY)
     Route: 045
  9. SKENAN [Suspect]
     Active Substance: MORPHINE SULFATE
     Dosage: UNK (FROM 60 TO 80 MG IN A SINGLE INTAKE, 2 TO 3 TIMES WEEKLY)
     Route: 045
     Dates: start: 2018

REACTIONS (17)
  - Tension [Unknown]
  - Rhinorrhoea [Unknown]
  - Diarrhoea [Unknown]
  - Feeling of body temperature change [Unknown]
  - Intentional product use issue [Unknown]
  - Drug dependence [Unknown]
  - Drug abuse [Unknown]
  - Hyperhidrosis [Unknown]
  - Yawning [Unknown]
  - Feeling hot [Unknown]
  - Nightmare [Unknown]
  - Anxiolytic therapy [Unknown]
  - Drug tolerance increased [Unknown]
  - Wrong technique in product usage process [Unknown]
  - Nausea [Unknown]
  - Somnolence [Unknown]
  - Euphoric mood [Unknown]
